FAERS Safety Report 20109072 (Version 1)
Quarter: 2021Q4

REPORT INFORMATION
  Report Type: Spontaneous
  Country: CO (occurrence: CO)
  Receive Date: 20211124
  Receipt Date: 20211124
  Transmission Date: 20220304
  Serious: No
  Sender: FDA-Public Use
  Company Number: CO-PFIZER INC-202101035105

PATIENT
  Sex: Male

DRUGS (1)
  1. GENOTROPIN [Suspect]
     Active Substance: SOMATROPIN
     Dosage: 2 MG, UNSPECIFIED FREQUENCY
     Route: 058
     Dates: start: 201910

REACTIONS (3)
  - Fear of injection [Unknown]
  - Drug dose omission by device [Unknown]
  - Device occlusion [Unknown]
